FAERS Safety Report 15777037 (Version 1)
Quarter: 2018Q4

REPORT INFORMATION
  Report Type: Spontaneous
  Country: CA (occurrence: CA)
  Receive Date: 20181231
  Receipt Date: 20181231
  Transmission Date: 20190205
  Serious: Yes (Other)
  Sender: FDA-Public Use
  Company Number: CA-PFIZER INC-2018530374

PATIENT
  Age: 101 Month
  Sex: Male

DRUGS (4)
  1. CARBOPLATIN. [Concomitant]
     Active Substance: CARBOPLATIN
     Indication: ASTROCYTOMA, LOW GRADE
     Dosage: UNK
  2. CARBOPLATIN. [Concomitant]
     Active Substance: CARBOPLATIN
     Dosage: UNK (DOSE REDUCTION)
  3. VINCRISTINE SULFATE. [Suspect]
     Active Substance: VINCRISTINE SULFATE
     Dosage: UNK (DOSE REDUCTION)
  4. VINCRISTINE SULFATE. [Suspect]
     Active Substance: VINCRISTINE SULFATE
     Indication: ASTROCYTOMA, LOW GRADE
     Dosage: UNK

REACTIONS (2)
  - Neuropathy peripheral [Recovering/Resolving]
  - Product use in unapproved indication [Unknown]
